FAERS Safety Report 12942876 (Version 2)
Quarter: 2016Q4

REPORT INFORMATION
  Report Type: Spontaneous
  Country: CN (occurrence: CN)
  Receive Date: 20161115
  Receipt Date: 20161214
  Transmission Date: 20170207
  Serious: Yes (Other)
  Sender: FDA-Public Use
  Company Number: CN-JNJFOC-20161113076

PATIENT
  Age: 33 Year
  Sex: Male

DRUGS (3)
  1. XARELTO [Suspect]
     Active Substance: RIVAROXABAN
     Indication: THROMBOSIS
     Dosage: 20 MG, QD
     Route: 048
  2. XARELTO [Suspect]
     Active Substance: RIVAROXABAN
     Indication: THROMBOSIS
     Dosage: 15 MG, BID
     Route: 048
  3. DIOSMIN [Concomitant]
     Active Substance: DIOSMIN
     Route: 065

REACTIONS (2)
  - Venous thrombosis [Unknown]
  - Thrombosis [Unknown]

NARRATIVE: CASE EVENT DATE: 20161109
